FAERS Safety Report 10020119 (Version 4)
Quarter: 2014Q2

REPORT INFORMATION
  Report Type: Report from Study
  Country: FR (occurrence: FR)
  Receive Date: 20140319
  Receipt Date: 20140407
  Transmission Date: 20141212
  Serious: Yes (Hospitalization)
  Sender: FDA-Public Use
  Company Number: FR-ROCHE-1219988

PATIENT
  Age: 55 Year
  Sex: Female
  Weight: 55 kg

DRUGS (3)
  1. TRASTUZUMAB EMTANSINE [Suspect]
     Indication: BREAST CANCER METASTATIC
     Dosage: LAST DOSE PRIOR TO THE ADVERSE EVENTS: 03/APR/2013 ?3.6MG/KG
     Route: 042
     Dates: start: 20130220
  2. LASILIX [Concomitant]
     Route: 065
     Dates: start: 2007
  3. DIFFU-K [Concomitant]
     Route: 065
     Dates: start: 20130413

REACTIONS (3)
  - Vomiting [Recovered/Resolved]
  - Nausea [Recovered/Resolved]
  - Anal haemorrhage [Recovered/Resolved]
